FAERS Safety Report 5530971-1 (Version None)
Quarter: 2007Q4

REPORT INFORMATION
  Report Type: 
  Country: None (occurrence: None)
  Receive Date: 20071130
  Receipt Date: 20071118
  Transmission Date: 20080405
  Serious: Yes (Disabling, Other)
  Sender: FDA-Public Use
  Company Number: NO-PFIZER INC-2007085453

PATIENT
  Age: 41 Year
  Sex: Female

DRUGS (1)
  1. CHAMPIX [Suspect]
     Indication: SMOKING CESSATION THERAPY
     Route: 048

REACTIONS (15)
  - APATHY [None]
  - BLOOD PRESSURE DECREASED [None]
  - CONSTIPATION [None]
  - DISTURBANCE IN ATTENTION [None]
  - DIZZINESS [None]
  - DYSPEPSIA [None]
  - FEELING ABNORMAL [None]
  - HAEMATOCHEZIA [None]
  - HEADACHE [None]
  - LISTLESS [None]
  - NAUSEA [None]
  - POLYMENORRHOEA [None]
  - POOR QUALITY SLEEP [None]
  - RECTAL HAEMORRHAGE [None]
  - SOMNOLENCE [None]
